FAERS Safety Report 6902096-1 (Version None)
Quarter: 2010Q3

REPORT INFORMATION
  Report Type: 
  Country: None (occurrence: None)
  Receive Date: 20100803
  Receipt Date: 20080422
  Transmission Date: 20110219
  Serious: No
  Sender: FDA-Public Use
  Company Number: US-PFIZER INC-2008035233

PATIENT
  Sex: Male
  Weight: 88.6 kg

DRUGS (2)
  1. LYRICA [Suspect]
     Indication: BURNING SENSATION
     Route: 048
     Dates: start: 20060302, end: 20080422
  2. LYRICA [Suspect]
     Indication: NECK PAIN

REACTIONS (2)
  - HEADACHE [None]
  - VISION BLURRED [None]
